FAERS Safety Report 13738544 (Version 2)
Quarter: 2018Q2

REPORT INFORMATION
  Report Type: Spontaneous
  Country: US (occurrence: US)
  Receive Date: 20170710
  Receipt Date: 20180627
  Transmission Date: 20180711
  Serious: Yes (Other)
  Sender: FDA-Public Use
  Company Number: US-SAOL THERAPEUTICS-2017SAO00020

PATIENT
  Age: 12 Year
  Sex: Male
  Weight: 15.42 kg

DRUGS (2)
  1. LIORESAL [Suspect]
     Active Substance: BACLOFEN
     Indication: MUSCLE SPASTICITY
     Dosage: 540 ?G, \DAY
     Route: 037
     Dates: start: 20161223, end: 20170103
  2. LIORESAL [Suspect]
     Active Substance: BACLOFEN
     Indication: CEREBRAL PALSY
     Dosage: 12.3 ?G, \DAY
     Route: 037
     Dates: start: 20170103

REACTIONS (3)
  - Bronchitis [Unknown]
  - Device failure [Unknown]
  - Drug withdrawal syndrome [Unknown]

NARRATIVE: CASE EVENT DATE: 20161231
